FAERS Safety Report 6116230-7 (Version None)
Quarter: 2009Q1

REPORT INFORMATION
  Report Type: 
  Country: None (occurrence: None)
  Receive Date: 20090314
  Receipt Date: 20081203
  Transmission Date: 20090719
  Serious: No
  Sender: FDA-Public Use
  Company Number: US-ABBOTT-08P-163-0490925-00

PATIENT
  Sex: Female
  Weight: 100.33 kg

DRUGS (16)
  1. HUMIRA [Suspect]
     Indication: PSORIATIC ARTHROPATHY
     Route: 058
     Dates: start: 20071221
  2. DICLOFENAC SODIUM [Concomitant]
     Indication: DRUG USE FOR UNKNOWN INDICATION
  3. BUPROPION HCL [Concomitant]
     Indication: DEPRESSION
  4. FUROSEMIDE [Concomitant]
     Indication: DRUG USE FOR UNKNOWN INDICATION
  5. FEXOFENADINE [Concomitant]
     Indication: HYPERSENSITIVITY
  6. PREGABALIN [Concomitant]
     Indication: NEURALGIA
  7. ACETYLSALICYLIC ACID [Concomitant]
     Indication: DRUG USE FOR UNKNOWN INDICATION
  8. BISACODYL [Concomitant]
     Indication: CONSTIPATION
  9. KAPSOVIT [Concomitant]
     Indication: DRUG USE FOR UNKNOWN INDICATION
  10. OXYBUTYNIN CHLORIDE [Concomitant]
     Indication: BLADDER DISORDER
  11. LIOTHYRONINE SODIUM [Concomitant]
     Indication: DRUG USE FOR UNKNOWN INDICATION
  12. SENNA GEN [Concomitant]
     Indication: DRUG USE FOR UNKNOWN INDICATION
  13. RASEREN [Concomitant]
     Indication: INSOMNIA
  14. CALCIUM [Concomitant]
     Indication: DRUG USE FOR UNKNOWN INDICATION
  15. OMEPRAZOLE [Concomitant]
     Indication: DYSPEPSIA
  16. FOLIC ACID [Concomitant]
     Indication: DRUG USE FOR UNKNOWN INDICATION

REACTIONS (4)
  - DRUG DELIVERY SYSTEM MALFUNCTION [None]
  - INCORRECT DOSE ADMINISTERED [None]
  - INJECTION SITE HAEMORRHAGE [None]
  - PAIN [None]
